FAERS Safety Report 9779681 (Version 3)
Quarter: 2014Q1

REPORT INFORMATION
  Report Type: Spontaneous
  Country: US (occurrence: US)
  Receive Date: 20131223
  Receipt Date: 20140212
  Transmission Date: 20141002
  Serious: Yes (Hospitalization)
  Sender: FDA-Public Use
  Company Number: US-NOVEN-13US008401

PATIENT
  Age: 55 Year
  Sex: Female
  Weight: 104.3 kg

DRUGS (7)
  1. MINIVELLE [Suspect]
     Indication: MENOPAUSE
     Dosage: 0.05 MG/DAY, TWICE WEEKLY
     Route: 062
     Dates: start: 20131119, end: 20131201
  2. PROMETRIUM [Concomitant]
     Indication: MENOPAUSE
     Dosage: 200 MG, UNK
     Route: 048
     Dates: start: 201101
  3. SYNTHROID [Concomitant]
     Indication: HYPOTHYROIDISM
     Dosage: 150 UG, UNK
     Route: 048
     Dates: start: 1991
  4. WELLBUTRIN [Concomitant]
     Indication: PRODUCT USED FOR UNKNOWN INDICATION
     Dosage: 300 MG, QD
  5. IBUPROFEN [Concomitant]
     Indication: PRODUCT USED FOR UNKNOWN INDICATION
     Dosage: UNK
  6. VIVELLE DOT [Concomitant]
     Indication: MENOPAUSE
     Dosage: 0.05 MG/DAY, UNK
     Dates: start: 201101, end: 20131119
  7. CIPRO                              /00697201/ [Concomitant]
     Indication: PRODUCT USED FOR UNKNOWN INDICATION
     Dosage: UNK
     Dates: end: 201311

REACTIONS (5)
  - Portal vein thrombosis [Recovering/Resolving]
  - Gastrointestinal haemorrhage [Recovering/Resolving]
  - Infectious colitis [Recovering/Resolving]
  - Vaginal haemorrhage [Not Recovered/Not Resolved]
  - Product quality issue [Recovered/Resolved]
